FAERS Safety Report 7663352-5 (Version None)
Quarter: 2011Q3

REPORT INFORMATION
  Report Type: 
  Country: None (occurrence: None)
  Receive Date: 20110805
  Receipt Date: 20101005
  Transmission Date: 20111222
  Serious: No
  Sender: FDA-Public Use
  Company Number: US-ABBOTT-10P-163-0664192-00

PATIENT
  Sex: Female
  Weight: 63.56 kg

DRUGS (5)
  1. MOBIC [Concomitant]
     Indication: ARTHRITIS
  2. ESTRASE [Concomitant]
     Indication: PRODUCT USED FOR UNKNOWN INDICATION
  3. ASPIRIN [Concomitant]
     Indication: PRODUCT USED FOR UNKNOWN INDICATION
  4. NIASPAN [Suspect]
     Indication: BLOOD CHOLESTEROL
  5. LISINOPRIL [Concomitant]
     Indication: BLOOD PRESSURE

REACTIONS (4)
  - URTICARIA [None]
  - RASH [None]
  - PRURITUS [None]
  - HYPERSENSITIVITY [None]
